FAERS Safety Report 10087305 (Version 1)
Quarter: 2014Q2

REPORT INFORMATION
  Report Type: Spontaneous
  Country: FR (occurrence: FR)
  Receive Date: 20140418
  Receipt Date: 20140418
  Transmission Date: 20141212
  Serious: Yes (Hospitalization)
  Sender: FDA-Public Use
  Company Number: FR-B.I. PHARMACEUTICALS,INC./RIDGEFIELD-2014-BI-16895FF

PATIENT
  Age: 71 Year
  Sex: Female
  Weight: 91.8 kg

DRUGS (7)
  1. PRADAXA [Suspect]
     Indication: ATRIAL FIBRILLATION
     Dosage: 220 MG
     Route: 048
     Dates: start: 20131201, end: 20140224
  2. SOTALEX 80 MG [Concomitant]
     Route: 065
  3. INEXIUM 40 MG [Concomitant]
     Route: 065
  4. LASILIX 40 MG [Concomitant]
     Route: 065
  5. SPECIAFOLDINE 5 MG [Concomitant]
     Route: 065
  6. TARDYFERON [Concomitant]
     Route: 065
  7. LYRICA 100 MG [Concomitant]
     Route: 065

REACTIONS (3)
  - Oliguria [Recovered/Resolved]
  - Renal failure acute [Recovered/Resolved]
  - Diarrhoea [Recovered/Resolved]
